FAERS Safety Report 17871596 (Version 1)
Quarter: 2020Q2

REPORT INFORMATION
  Report Type: Spontaneous
  Country: US (occurrence: US)
  Receive Date: 20200608
  Receipt Date: 20200608
  Transmission Date: 20200714
  Serious: Yes (Other)
  Sender: FDA-Public Use
  Company Number: US-PFIZER INC-2019298976

PATIENT
  Age: 63 Year
  Sex: Female
  Weight: 44.91 kg

DRUGS (3)
  1. DILANTIN [Suspect]
     Active Substance: PHENYTOIN
     Indication: EPILEPSY
     Dosage: 300 MG, DAILY (ONE CAPSULE IN THE MORNING AND TWO AT BEDTIME)
     Route: 048
     Dates: start: 20190101
  2. DILANTIN [Suspect]
     Active Substance: PHENYTOIN
     Indication: SEIZURE
     Dosage: 100 MG, TWICE A DAY (100MG CAPSULE, 1 CAPSULE IN THE MORNING AND 1 CAPSULE AT NIGHT)
     Dates: start: 2020, end: 2020
  3. DILANTIN [Suspect]
     Active Substance: PHENYTOIN
     Dosage: 300 MG, DAILY (1 CAPSULE IN THE MORNING AND 2 CAPSULES AT NIGHT)
     Dates: start: 2020

REACTIONS (4)
  - Drug level increased [Unknown]
  - Weight increased [Unknown]
  - Drug dependence [Unknown]
  - Off label use [Unknown]
